FAERS Safety Report 6059114-5 (Version None)
Quarter: 2009Q1

REPORT INFORMATION
  Report Type: 
  Country: None (occurrence: None)
  Receive Date: 20090130
  Receipt Date: 20090121
  Transmission Date: 20090719
  Serious: Yes (Death)
  Sender: FDA-Public Use
  Company Number: US-JNJFOC-20090105389

PATIENT
  Sex: Male
  Weight: 87.54 kg

DRUGS (11)
  1. FENTANYL-75 [Suspect]
     Indication: DRUG USE FOR UNKNOWN INDICATION
     Route: 062
  2. PROPOXYPHENE HYDROCHLORIDE [Suspect]
     Indication: DRUG USE FOR UNKNOWN INDICATION
  3. OXYCODONE HCL [Suspect]
     Indication: DRUG USE FOR UNKNOWN INDICATION
  4. GABAPENTIN [Concomitant]
  5. MIRTAZAPINE [Concomitant]
  6. METOPROLOL [Concomitant]
  7. NORVASC [Concomitant]
  8. ALPRAZOLAM [Concomitant]
  9. CLONAZEPAM [Concomitant]
  10. CARISOPRODOL [Concomitant]
  11. EFFEXOR [Concomitant]

REACTIONS (2)
  - DRUG TOXICITY [None]
  - INCORRECT ROUTE OF DRUG ADMINISTRATION [None]
